FAERS Safety Report 22324936 (Version 2)
Quarter: 2023Q2

REPORT INFORMATION
  Report Type: Spontaneous
  Country: JP (occurrence: JP)
  Receive Date: 20230516
  Receipt Date: 20230627
  Transmission Date: 20230721
  Serious: Yes (Hospitalization)
  Sender: FDA-Public Use
  Company Number: JP-MYE-2023M1049707AA

PATIENT
  Age: 26 Year
  Sex: Female
  Weight: 52.4 kg

DRUGS (6)
  1. ACETAMINOPHEN [Suspect]
     Active Substance: ACETAMINOPHEN
     Indication: Neck pain
     Dosage: 600 MILLIGRAM, TID
     Route: 048
  2. ACETAMINOPHEN [Suspect]
     Active Substance: ACETAMINOPHEN
     Indication: Pyrexia
  3. METHIMAZOLE [Suspect]
     Active Substance: METHIMAZOLE
     Indication: Neck pain
     Dosage: 15 MILLIGRAM, QD
     Route: 065
  4. METHIMAZOLE [Suspect]
     Active Substance: METHIMAZOLE
     Indication: Pyrexia
  5. ATENOLOL [Suspect]
     Active Substance: ATENOLOL
     Indication: Neck pain
     Dosage: 50 MILLIGRAM, QD
     Route: 065
  6. ATENOLOL [Suspect]
     Active Substance: ATENOLOL
     Indication: Pyrexia

REACTIONS (2)
  - Nausea [Unknown]
  - Decreased appetite [Unknown]
